FAERS Safety Report 5080376-5 (Version None)
Quarter: 2006Q3

REPORT INFORMATION
  Report Type: 
  Country: None (occurrence: None)
  Receive Date: 20060815
  Receipt Date: 20060713
  Transmission Date: 20061208
  Serious: Yes (Hospitalization)
  Sender: FDA-Public Use
  Company Number: US-ROCHE-455573

PATIENT
  Age: 53 Year
  Sex: Female

DRUGS (5)
  1. PEGASYS [Suspect]
     Dosage: WEEKLY.
     Route: 065
     Dates: start: 20050315, end: 20051115
  2. PEGASYS [Suspect]
     Dosage: WEEKLY.
     Route: 065
     Dates: start: 20060616
  3. COPEGUS [Suspect]
     Route: 065
     Dates: start: 20050315, end: 20051115
  4. COPEGUS [Suspect]
     Route: 065
     Dates: start: 20060616
  5. PREVACID [Concomitant]
     Dates: start: 20050315

REACTIONS (9)
  - ANAEMIA [None]
  - APPENDICITIS PERFORATED [None]
  - BACK PAIN [None]
  - BLOOD MAGNESIUM DECREASED [None]
  - CLOSTRIDIUM DIFFICILE COLITIS [None]
  - HYPOKALAEMIA [None]
  - IRRITABILITY [None]
  - MOOD SWINGS [None]
  - SMALL INTESTINAL OBSTRUCTION [None]
